FAERS Safety Report 6604728-4 (Version None)
Quarter: 2010Q1

REPORT INFORMATION
  Report Type: 
  Country: None (occurrence: None)
  Receive Date: 20100226
  Receipt Date: 20091110
  Transmission Date: 20100710
  Serious: No
  Sender: FDA-Public Use
  Company Number: US-BRISTOL-MYERS SQUIBB COMPANY-14850564

PATIENT
  Age: 83 Year
  Sex: Female
  Weight: 60 kg

DRUGS (9)
  1. ONGLYZA [Suspect]
     Indication: TYPE 2 DIABETES MELLITUS
     Route: 048
  2. WARFARIN SODIUM [Suspect]
     Dosage: 4MG, 1 TAB/D:6D D7:NOT TAKEN 4MG;1.5 TAB: 6D 1 TAB:D7 4MG 1 TAB/D 1 TAB 6 DAYS 1.5 TAB:D7
  3. LEVOTHYROXINE [Concomitant]
  4. LANOXIN [Concomitant]
  5. FUROSEMIDE [Concomitant]
  6. SPIRONOLACTONE [Concomitant]
  7. ALLOPURINOL [Concomitant]
  8. METOPROLOL TARTRATE [Concomitant]
  9. DIOVAN [Concomitant]

REACTIONS (5)
  - ARTHRALGIA [None]
  - DANDRUFF [None]
  - HEADACHE [None]
  - INTERNATIONAL NORMALISED RATIO ABNORMAL [None]
  - URINARY TRACT INFECTION [None]
